FAERS Safety Report 5115102-4 (Version None)
Quarter: 2006Q3

REPORT INFORMATION
  Report Type: 
  Country: None (occurrence: None)
  Receive Date: 20060925
  Receipt Date: 20060925
  Transmission Date: 20061208
  Serious: Yes (Disabling, Other)
  Sender: FDA-Public Use
  Company Number: None

PATIENT
  Sex: Male
  Weight: 68 kg

DRUGS (1)
  1. INTERFERON ALPHA2B 30000 IU IRAN [Suspect]
     Dosage: 3 TIMES WEEKLY
     Dates: start: 20040203, end: 20050203

REACTIONS (6)
  - ERECTILE DYSFUNCTION [None]
  - EXERCISE TOLERANCE DECREASED [None]
  - ILL-DEFINED DISORDER [None]
  - LIBIDO DECREASED [None]
  - SPERM COUNT DECREASED [None]
  - TESTICULAR DISORDER [None]
